FAERS Safety Report 7760653-7 (Version None)
Quarter: 2011Q3

REPORT INFORMATION
  Report Type: 
  Country: None (occurrence: None)
  Receive Date: 20110919
  Receipt Date: 20110908
  Transmission Date: 20111222
  Serious: Yes (Other)
  Sender: FDA-Public Use
  Company Number: US-PFIZER INC-2011219458

PATIENT
  Sex: Female

DRUGS (2)
  1. MORPHINE SULFATE [Suspect]
     Indication: PAIN
  2. DILAUDID [Suspect]
     Indication: PAIN

REACTIONS (2)
  - ANAPHYLACTIC REACTION [None]
  - HYPERSENSITIVITY [None]
